FAERS Safety Report 16148068 (Version 1)
Quarter: 2019Q2

REPORT INFORMATION
  Report Type: Spontaneous
  Country: US (occurrence: US)
  Receive Date: 20190402
  Receipt Date: 20190402
  Transmission Date: 20190711
  Serious: No
  Sender: FDA-Public Use
  Company Number: US-MYLANLABS-2019M1024454

PATIENT

DRUGS (1)
  1. CARVEDILOL TABLETS, USP [Suspect]
     Active Substance: CARVEDILOL
     Indication: HYPERTENSION
     Dosage: 1 DOSAGE FORM, BID
     Route: 048
     Dates: start: 201901

REACTIONS (1)
  - Hyperhidrosis [Not Recovered/Not Resolved]

NARRATIVE: CASE EVENT DATE: 201901
